FAERS Safety Report 25720848 (Version 1)
Quarter: 2025Q3

REPORT INFORMATION
  Report Type: Spontaneous
  Country: CN (occurrence: CN)
  Receive Date: 20250825
  Receipt Date: 20250825
  Transmission Date: 20251021
  Serious: Yes (Other)
  Sender: Onesource Specialty Pharma
  Company Number: CN-STRIDES ARCOLAB LIMITED-2025OS000491

PATIENT
  Age: 45 Year
  Sex: Female

DRUGS (9)
  1. ETOPOSIDE [Suspect]
     Active Substance: ETOPOSIDE
     Indication: Neuroendocrine carcinoma
     Route: 065
     Dates: start: 20210125, end: 20210730
  2. ETOPOSIDE [Suspect]
     Active Substance: ETOPOSIDE
     Indication: Large cell lung cancer stage IV
     Route: 065
     Dates: start: 20220728
  3. CAMRELIZUMAB [Suspect]
     Active Substance: CAMRELIZUMAB
     Indication: Neuroendocrine carcinoma
     Route: 065
     Dates: start: 20210125, end: 20220624
  4. CAMRELIZUMAB [Suspect]
     Active Substance: CAMRELIZUMAB
     Indication: Large cell lung cancer stage IV
     Route: 065
     Dates: start: 20220728
  5. CISPLATIN [Suspect]
     Active Substance: CISPLATIN
     Indication: Neuroendocrine carcinoma
     Route: 065
     Dates: start: 20210125, end: 20210730
  6. CISPLATIN [Suspect]
     Active Substance: CISPLATIN
     Indication: Large cell lung cancer stage IV
     Route: 065
     Dates: start: 20220728
  7. CISPLATIN [Suspect]
     Active Substance: CISPLATIN
     Route: 065
     Dates: start: 20220728
  8. ENDOSTATIN [Suspect]
     Active Substance: ENDOSTATIN
     Indication: Neuroendocrine carcinoma
     Route: 042
     Dates: start: 20210125, end: 20220624
  9. ENDOSTATIN [Suspect]
     Active Substance: ENDOSTATIN
     Indication: Large cell lung cancer stage IV
     Route: 042
     Dates: start: 20220728

REACTIONS (4)
  - Neoplasm progression [Unknown]
  - Gastrointestinal toxicity [Unknown]
  - Myelosuppression [Unknown]
  - Off label use [Unknown]

NARRATIVE: CASE EVENT DATE: 20210101
